FAERS Safety Report 5284097-5 (Version None)
Quarter: 2007Q1

REPORT INFORMATION
  Report Type: 
  Country: None (occurrence: None)
  Receive Date: 20070327
  Receipt Date: 20070320
  Transmission Date: 20070707
  Serious: Yes (Death, Life-Threatening, Other)
  Sender: FDA-Public Use
  Company Number: 163-21880-06080866

PATIENT
  Sex: Male

DRUGS (2)
  1. REVLIMID [Suspect]
     Indication: MYELODYSPLASTIC SYNDROME
     Dosage: 10 MG, 1 IN 1 D, ORAL
     Route: 048
     Dates: start: 20060706, end: 20060801
  2. TRANSFUSION [Concomitant]

REACTIONS (6)
  - ANAEMIA [None]
  - DISEASE PROGRESSION [None]
  - JAUNDICE [None]
  - MYELODYSPLASTIC SYNDROME [None]
  - SEPSIS [None]
  - UROSEPSIS [None]
